FAERS Safety Report 19042607 (Version 1)
Quarter: 2021Q1

REPORT INFORMATION
  Report Type: Spontaneous
  Country: US (occurrence: US)
  Receive Date: 20210322
  Receipt Date: 20210322
  Transmission Date: 20210420
  Serious: Yes (Hospitalization)
  Sender: FDA-Public Use
  Company Number: None

PATIENT
  Age: 76 Year
  Sex: Male

DRUGS (11)
  1. LEVOTHYROXIN [Suspect]
     Active Substance: LEVOTHYROXINE
  2. CARVEDILOL. [Suspect]
     Active Substance: CARVEDILOL
  3. PROAIR HFA [Suspect]
     Active Substance: ALBUTEROL SULFATE
  4. ESBRIET [Suspect]
     Active Substance: PIRFENIDONE
     Indication: PULMONARY FIBROSIS
     Dosage: ?          OTHER DOSE:1 TAB;?
     Route: 048
     Dates: start: 20201201
  5. DILTIAZEM ER [Suspect]
     Active Substance: DILTIAZEM
  6. PANTOPRAZOLE [Suspect]
     Active Substance: PANTOPRAZOLE
  7. SOTALOL HCL [Suspect]
     Active Substance: SOTALOL
  8. ELIQUIS [Suspect]
     Active Substance: APIXABAN
  9. SIMVASTATIN. [Suspect]
     Active Substance: SIMVASTATIN
  10. SULFASALAZINE DELAYED?RELEASE [Suspect]
     Active Substance: SULFASALAZINE
  11. WARFARIN [Suspect]
     Active Substance: WARFARIN

REACTIONS (3)
  - Rales [None]
  - Cardiac flutter [None]
  - Therapy interrupted [None]

NARRATIVE: CASE EVENT DATE: 20210301
